FAERS Safety Report 6667733-8 (Version None)
Quarter: 2010Q1

REPORT INFORMATION
  Report Type: 
  Country: None (occurrence: None)
  Receive Date: 20100331
  Receipt Date: 20100316
  Transmission Date: 20100710
  Serious: Yes (Other)
  Sender: FDA-Public Use
  Company Number: A-CH2010-34833

PATIENT
  Age: 23 Year
  Sex: Male

DRUGS (6)
  1. TRACLEER [Suspect]
     Indication: PULMONARY ARTERIAL HYPERTENSION
     Dosage: 125 MG, BID, ORAL
     Route: 048
     Dates: start: 20091029
  2. LAMOTRIGINE [Suspect]
     Dosage: MG, BID
  3. KEPPRA [Suspect]
  4. DEPAKENE [Suspect]
  5. LASIX [Concomitant]
  6. RUFINAMIDE (RUFINAMIDE) [Concomitant]

REACTIONS (3)
  - CONDITION AGGRAVATED [None]
  - DRUG INTERACTION [None]
  - EPILEPSY [None]
